FAERS Safety Report 21533961 (Version 1)
Quarter: 2022Q4

REPORT INFORMATION
  Report Type: Spontaneous
  Country: US (occurrence: US)
  Receive Date: 20221101
  Receipt Date: 20221101
  Transmission Date: 20230113
  Serious: Yes (Other)
  Sender: FDA-Public Use
  Company Number: US-SA-SAC20221029000575

PATIENT
  Age: 30 Year
  Sex: Male

DRUGS (1)
  1. ZANTAC [Suspect]
     Active Substance: RANITIDINE HYDROCHLORIDE
     Indication: Dyspepsia
     Dosage: 150 MG
     Dates: start: 201401, end: 201708

REACTIONS (1)
  - Bladder cancer stage I, with cancer in situ [Not Recovered/Not Resolved]

NARRATIVE: CASE EVENT DATE: 20170801
